FAERS Safety Report 16351177 (Version 3)
Quarter: 2019Q3

REPORT INFORMATION
  Report Type: Spontaneous
  Country: US (occurrence: US)
  Receive Date: 20190524
  Receipt Date: 20190710
  Transmission Date: 20191004
  Serious: No
  Sender: FDA-Public Use
  Company Number: US-JNJFOC-20190505758

PATIENT
  Age: 19 Year
  Sex: Male
  Weight: 88.98 kg

DRUGS (3)
  1. INVEGA SUSTENNA [Suspect]
     Active Substance: PALIPERIDONE PALMITATE
     Indication: PRODUCT USED FOR UNKNOWN INDICATION
     Route: 030
     Dates: start: 201903, end: 201903
  2. INVEGA SUSTENNA [Suspect]
     Active Substance: PALIPERIDONE PALMITATE
     Route: 030
     Dates: start: 201903, end: 201903
  3. INVEGA [Suspect]
     Active Substance: PALIPERIDONE
     Indication: PRODUCT USED FOR UNKNOWN INDICATION
     Dosage: A COUPLE OF TIMES
     Route: 048
     Dates: start: 201903, end: 201903

REACTIONS (8)
  - Depressed mood [Not Recovered/Not Resolved]
  - Herbal interaction [Not Recovered/Not Resolved]
  - Substance use [Not Recovered/Not Resolved]
  - Tremor [Recovered/Resolved]
  - Feeling abnormal [Not Recovered/Not Resolved]
  - Asthenia [Unknown]
  - Flat affect [Not Recovered/Not Resolved]
  - Sexual dysfunction [Not Recovered/Not Resolved]

NARRATIVE: CASE EVENT DATE: 201903
